FAERS Safety Report 4716607-8 (Version None)
Quarter: 2005Q3

REPORT INFORMATION
  Report Type: 
  Country: None (occurrence: None)
  Receive Date: 20050714
  Receipt Date: 20050629
  Transmission Date: 20060218
  Serious: Yes (Hospitalization)
  Sender: FDA-Public Use
  Company Number: 2005BI012564

PATIENT
  Sex: Female

DRUGS (2)
  1. AVONEX [Suspect]
     Indication: MULTIPLE SCLEROSIS
     Dosage: 30 UG;QW;IM
     Route: 030
     Dates: start: 19961003
  2. MEDICATIONS (NOS) [Concomitant]

REACTIONS (4)
  - BIPOLAR DISORDER [None]
  - DEPRESSION [None]
  - HALLUCINATION [None]
  - PARANOIA [None]
